FAERS Safety Report 10244030 (Version 3)
Quarter: 2014Q4

REPORT INFORMATION
  Report Type: Spontaneous
  Country: FR (occurrence: None)
  Receive Date: 20140616
  Receipt Date: 20141030
  Transmission Date: 20150528
  Serious: Yes (Hospitalization)
  Sender: FDA-Public Use
  Company Number: FR-015957

PATIENT
  Age: 44 Year
  Sex: Male

DRUGS (4)
  1. LEVEMIR [Concomitant]
     Active Substance: INSULIN DETEMIR
  2. AMAREL [Concomitant]
     Active Substance: GLIMEPIRIDE
  3. FIRMAGON [Suspect]
     Active Substance: DEGARELIX ACETATE
     Indication: PROSTATE CANCER
     Dosage: 240 MG TOTAL SUBCUTANEOUS?
     Route: 058
     Dates: start: 201404, end: 201404
  4. BICALUTAMIDE. [Concomitant]
     Active Substance: BICALUTAMIDE

REACTIONS (5)
  - Blood glucose abnormal [None]
  - Injection site abscess [None]
  - Inflammation [None]
  - Fistula [None]
  - Staphylococcal infection [None]

NARRATIVE: CASE EVENT DATE: 201404
